FAERS Safety Report 5853344-0 (Version None)
Quarter: 2008Q3

REPORT INFORMATION
  Report Type: 
  Country: None (occurrence: None)
  Receive Date: 20080820
  Receipt Date: 20080808
  Transmission Date: 20090109
  Serious: Yes (Hospitalization)
  Sender: FDA-Public Use
  Company Number: 2008SP001842

PATIENT
  Age: 71 Year
  Sex: Male

DRUGS (17)
  1. ALVESCO [Suspect]
     Indication: ASTHMA
     Dosage: 400 UG;BD;INHALATION; 400 UG;QD;INHALATION
     Route: 055
     Dates: start: 20080418, end: 20080519
  2. ALVESCO [Suspect]
     Indication: ASTHMA
     Dosage: 400 UG;BD;INHALATION; 400 UG;QD;INHALATION
     Route: 055
     Dates: start: 20080502, end: 20080718
  3. AMLODIPINE [Concomitant]
  4. URALYT-U [Concomitant]
  5. URINORM [Concomitant]
  6. LANSOPRAZOLE [Concomitant]
  7. FERROMIA [Concomitant]
  8. LORCAM [Concomitant]
  9. MYONAL/01071502 [Concomitant]
  10. MUCOSTA [Concomitant]
  11. SULTANOL/00139502 [Concomitant]
  12. HOKUNALIN [Concomitant]
  13. SAIBOKU-TO [Concomitant]
  14. THEO-DUR [Concomitant]
  15. ZYLORIC/00003302/ [Concomitant]
  16. DOMENAN [Concomitant]
  17. DIOVAN/01347001 [Concomitant]

REACTIONS (3)
  - BLOOD CREATINE PHOSPHOKINASE INCREASED [None]
  - INAPPROPRIATE SCHEDULE OF DRUG ADMINISTRATION [None]
  - INCORRECT DOSE ADMINISTERED [None]
